FAERS Safety Report 24567838 (Version 2)
Quarter: 2024Q4

REPORT INFORMATION
  Report Type: Spontaneous
  Country: CA (occurrence: CA)
  Receive Date: 20241031
  Receipt Date: 20241224
  Transmission Date: 20250114
  Serious: Yes (Hospitalization, Other)
  Sender: Unknown Manufacturer
  Company Number: CA-MIRUM PHARMACEUTICALS, INC.-CA-MIR-24-00947

PATIENT

DRUGS (1)
  1. LIVMARLI [Suspect]
     Active Substance: MARALIXIBAT CHLORIDE
     Indication: Cholestasis of pregnancy
     Dosage: 0.48 MILLILITER, QD
     Route: 048
     Dates: start: 20241010, end: 20241013

REACTIONS (4)
  - Premature labour [Recovered/Resolved]
  - Vaginal haemorrhage [Recovered/Resolved]
  - Maternal exposure during pregnancy [Recovered/Resolved]
  - Off label use [Unknown]

NARRATIVE: CASE EVENT DATE: 20241010
